FAERS Safety Report 9805407 (Version 1)
Quarter: 2014Q1

REPORT INFORMATION
  Report Type: Spontaneous
  Country: US (occurrence: US)
  Receive Date: 20140109
  Receipt Date: 20140109
  Transmission Date: 20141002
  Serious: No
  Sender: FDA-Public Use
  Company Number: US-PFIZER INC-2014006491

PATIENT
  Sex: Female

DRUGS (6)
  1. LIPITOR [Suspect]
     Dosage: UNK
  2. CLONAZEPAM [Concomitant]
     Dosage: 1 MG, 2X/DAY
  3. SERTRALINE [Concomitant]
     Dosage: 50 MG, UNK
  4. LEVOTHYROXINE [Concomitant]
     Dosage: UNK
  5. PEPCID [Concomitant]
     Dosage: 40 MG, UNK
  6. LYRICA [Concomitant]
     Dosage: UNK

REACTIONS (1)
  - Muscle spasms [Unknown]
